FAERS Safety Report 9037847 (Version 1)
Quarter: 2013Q1

REPORT INFORMATION
  Report Type: Report from Study
  Country: US (occurrence: US)
  Receive Date: 20130129
  Receipt Date: 20130129
  Transmission Date: 20140127
  Serious: No
  Sender: FDA-Public Use
  Company Number: US-ABBOTT-11P-163-0873615-00

PATIENT
  Age: 51 Year
  Sex: Female

DRUGS (5)
  1. HUMIRA 40 MG/0.8 ML PEN [Suspect]
     Indication: CROHN^S DISEASE
     Dosage: LOADING DOSE # 1 - 160 MG
     Dates: start: 20111109, end: 20111109
  2. HUMIRA 40 MG/0.8 ML PEN [Suspect]
     Route: 058
  3. FENTANYL [Concomitant]
     Indication: WOUND
     Dosage: PATCH
  4. DILAUDID [Concomitant]
     Indication: PAIN
     Dosage: 2 MG DAILY
  5. CYMBALTA [Concomitant]
     Indication: NEUROPATHY PERIPHERAL
     Dosage: 60 MG DAILY

REACTIONS (3)
  - Nausea [Not Recovered/Not Resolved]
  - Vomiting [Recovered/Resolved]
  - Fatigue [Unknown]
